FAERS Safety Report 6370958-2 (Version None)
Quarter: 2009Q3

REPORT INFORMATION
  Report Type: 
  Country: None (occurrence: None)
  Receive Date: 20090923
  Receipt Date: 20070605
  Transmission Date: 20100115
  Serious: Yes (Other)
  Sender: FDA-Public Use
  Company Number: US-ASTRAZENECA-2006UW23118

PATIENT
  Age: 19653 Day
  Sex: Female
  Weight: 123.8 kg

DRUGS (15)
  1. SEROQUEL [Suspect]
     Indication: SCHIZOPHRENIA
     Route: 048
     Dates: start: 19970214, end: 20030405
  2. SEROQUEL [Suspect]
     Indication: BIPOLAR DISORDER
     Route: 048
     Dates: start: 19970214, end: 20030405
  3. SEROQUEL [Suspect]
     Indication: DEPRESSION
     Route: 048
     Dates: start: 19970214, end: 20030405
  4. SEROQUEL [Suspect]
     Dosage: 30-600 MG (FLUCTUATING)
     Route: 048
     Dates: end: 20060316
  5. SEROQUEL [Suspect]
     Dosage: 30-600 MG (FLUCTUATING)
     Route: 048
     Dates: end: 20060316
  6. SEROQUEL [Suspect]
     Dosage: 30-600 MG (FLUCTUATING)
     Route: 048
     Dates: end: 20060316
  7. GEODON [Concomitant]
  8. ZYPREXA [Concomitant]
     Dosage: 7.5-100 MG AT NIGHT
     Route: 048
     Dates: start: 19970408, end: 20020805
  9. ZOLOFT [Concomitant]
     Dosage: 25-100 MG (FLUCTUATING) EVERY DAY
     Route: 048
     Dates: start: 19990628
  10. BUSPAR [Concomitant]
     Dosage: 10-20 MG (FLUCTUATING) TWO TIMES A DAY
     Route: 048
     Dates: start: 19990603
  11. HYDROXYZINE [Concomitant]
     Dosage: 25 MG ONE TO TWO AT EVERY NIGHT
     Route: 048
     Dates: start: 20010122
  12. TRILAFON [Concomitant]
     Route: 048
     Dates: start: 20020603
  13. RISPERDAL [Concomitant]
     Route: 048
     Dates: start: 20000417
  14. ZOCOR [Concomitant]
     Indication: HYPERLIPIDAEMIA
     Dates: start: 19970509
  15. ZESTRIL [Concomitant]
     Indication: HYPERTENSION
     Dates: start: 20070509

REACTIONS (3)
  - DIABETES MELLITUS [None]
  - HYPERGLYCAEMIA [None]
  - TYPE 2 DIABETES MELLITUS [None]
